FAERS Safety Report 7357541-7 (Version None)
Quarter: 2011Q1

REPORT INFORMATION
  Report Type: 
  Country: None (occurrence: None)
  Receive Date: 20110317
  Receipt Date: 20110311
  Transmission Date: 20110831
  Serious: Yes (Other)
  Sender: FDA-Public Use
  Company Number: US-ELI_LILLY_AND_COMPANY-US201103003754

PATIENT
  Sex: Female
  Weight: 89.796 kg

DRUGS (3)
  1. GLIPIZIDE [Concomitant]
     Indication: TYPE 2 DIABETES MELLITUS
     Dosage: 10 MG, DAILY (1/D)
     Route: 048
  2. BYETTA [Suspect]
     Indication: TYPE 2 DIABETES MELLITUS
     Dosage: 5 UG, 2/D
     Route: 058
  3. METFORMIN HCL [Concomitant]
     Indication: TYPE 2 DIABETES MELLITUS
     Dosage: 500 MG, 2/D
     Route: 048

REACTIONS (10)
  - BRONCHITIS CHRONIC [None]
  - BLOOD GLUCOSE FLUCTUATION [None]
  - BLOOD GLUCOSE DECREASED [None]
  - CHRONIC OBSTRUCTIVE PULMONARY DISEASE [None]
  - VISUAL ACUITY REDUCED [None]
  - ASTHMA [None]
  - PNEUMONIA [None]
  - WEIGHT INCREASED [None]
  - UTERINE LEIOMYOMA [None]
  - BLOOD GLUCOSE INCREASED [None]
